FAERS Safety Report 9013969 (Version 1)
Quarter: 2012Q4

REPORT INFORMATION
  Report Type: Spontaneous
  Country: US (occurrence: None)
  Receive Date: 20121231
  Receipt Date: 20121231
  Transmission Date: 20130627
  Serious: Yes (Other)
  Sender: FDA-Public Use
  Company Number: 2012AP004356

PATIENT
  Age: 66 Year
  Sex: Female

DRUGS (17)
  1. DILT-XR [Suspect]
     Indication: HYPERTENSION
     Dates: start: 201107
  2. GOLIMUMAB [Suspect]
  3. FUROSEMIDE [Suspect]
  4. HYDROCHLOROTHIAZIDE [Concomitant]
  5. TRIAMCINOILONE [Concomitant]
  6. ATENOLOL [Concomitant]
  7. BUPROPION [Concomitant]
  8. NISOLDIPINE [Concomitant]
  9. GABAPENTIN [Concomitant]
  10. CARBIDOOPA/LEVODOPA [Concomitant]
  11. TRAZODONE [Concomitant]
  12. CITALOPRAM [Concomitant]
  13. DULOXETINE [Concomitant]
  14. ZIPRASIDONE [Concomitant]
  15. OXYCODONE/PARACETAMOL [Concomitant]
  16. FISH OIL [Concomitant]
  17. CALCIUM [Concomitant]

REACTIONS (2)
  - Cutaneous lupus erythematosus [None]
  - Condition aggravated [None]
